FAERS Safety Report 7362879-3 (Version None)
Quarter: 2011Q1

REPORT INFORMATION
  Report Type: 
  Country: None (occurrence: None)
  Receive Date: 20110321
  Receipt Date: 20110311
  Transmission Date: 20110831
  Serious: No
  Sender: FDA-Public Use
  Company Number: US-BIOGENIDEC-2011BI009547

PATIENT
  Age: 27 Year
  Sex: Female

DRUGS (2)
  1. TYSABRI [Suspect]
     Indication: MULTIPLE SCLEROSIS
     Route: 042
     Dates: start: 20081125
  2. TYSABRI [Suspect]
     Route: 042
     Dates: start: 20070111, end: 20071129

REACTIONS (2)
  - CONJUNCTIVITIS INFECTIVE [None]
  - EAR INFECTION [None]
